FAERS Safety Report 9593842 (Version 1)
Quarter: 2013Q4

REPORT INFORMATION
  Report Type: Spontaneous
  Country: NO (occurrence: NO)
  Receive Date: 20131004
  Receipt Date: 20131004
  Transmission Date: 20140711
  Serious: Yes (Death)
  Sender: FDA-Public Use
  Company Number: NO-TEVA-433996ISR

PATIENT
  Age: 66 Year
  Sex: Male
  Weight: 78 kg

DRUGS (7)
  1. METHOTREXATE [Suspect]
     Indication: RHEUMATOID ARTHRITIS
     Route: 048
     Dates: start: 20120207, end: 201211
  2. ENBREL [Suspect]
     Indication: RHEUMATOID ARTHRITIS
     Route: 058
     Dates: start: 20120814, end: 201211
  3. IMIGRAN [Concomitant]
     Indication: MIGRAINE
  4. FOSAMAX [Concomitant]
     Indication: OSTEOPENIA
     Route: 048
     Dates: start: 20120309
  5. ZESTRIL [Concomitant]
     Indication: MIGRAINE
     Route: 048
  6. FOLSYRE NAF [Concomitant]
     Route: 048
     Dates: start: 20120207, end: 201211
  7. CALCIGRAN FORTE [Concomitant]
     Indication: OSTEOPENIA
     Route: 048
     Dates: start: 20120207

REACTIONS (3)
  - Pneumocystis jirovecii pneumonia [Fatal]
  - Acute respiratory failure [Fatal]
  - Renal failure [Fatal]
